FAERS Safety Report 13451913 (Version 1)
Quarter: 2017Q2

REPORT INFORMATION
  Report Type: Spontaneous
  Country: US (occurrence: US)
  Receive Date: 20170418
  Receipt Date: 20170418
  Transmission Date: 20170830
  Serious: Yes (Other)
  Sender: FDA-Public Use
  Company Number: PHEH2017US010457

PATIENT
  Sex: Female
  Weight: 69.4 kg

DRUGS (6)
  1. XARELTO [Concomitant]
     Active Substance: RIVAROXABAN
     Indication: PULMONARY EMBOLISM
     Dosage: UNK
     Route: 065
     Dates: start: 2008
  2. AROMASIN [Suspect]
     Active Substance: EXEMESTANE
     Indication: HER-2 POSITIVE BREAST CANCER
     Dosage: 25 MG, QD
     Route: 048
  3. FEMARA [Suspect]
     Active Substance: LETROZOLE
     Indication: HER-2 POSITIVE BREAST CANCER
     Dosage: UNK UNK, QD
     Route: 048
  4. HERCEPTIN [Suspect]
     Active Substance: TRASTUZUMAB
     Indication: HER-2 POSITIVE BREAST CANCER
     Dosage: UNK UNK, QW
     Route: 041
  5. ARIMIDEX [Suspect]
     Active Substance: ANASTROZOLE
     Indication: HER-2 POSITIVE BREAST CANCER
     Dosage: UNK UNK, QD
     Route: 048
  6. ADRIAMYCIN [Suspect]
     Active Substance: DOXORUBICIN HYDROCHLORIDE
     Indication: HER-2 POSITIVE BREAST CANCER
     Route: 041

REACTIONS (20)
  - Abasia [Recovered/Resolved]
  - Neuropathy peripheral [Unknown]
  - Arthralgia [Unknown]
  - Weight decreased [Unknown]
  - Headache [Not Recovered/Not Resolved]
  - Weight increased [Not Recovered/Not Resolved]
  - Onychomadesis [Recovered/Resolved]
  - Alopecia [Recovered/Resolved]
  - Lethargy [Unknown]
  - Depression [Unknown]
  - Alopecia [Unknown]
  - Deep vein thrombosis [Recovered/Resolved]
  - Anxiety [Unknown]
  - Bone pain [Unknown]
  - Drug hypersensitivity [Recovered/Resolved]
  - Memory impairment [Not Recovered/Not Resolved]
  - Thrombosis [Recovered/Resolved]
  - Stomatitis [Recovered/Resolved]
  - Anaemia [Recovered/Resolved]
  - Fatigue [Unknown]
